FAERS Safety Report 22277665 (Version 1)
Quarter: 2023Q2

REPORT INFORMATION
  Report Type: Spontaneous
  Country: CN (occurrence: CN)
  Receive Date: 20230503
  Receipt Date: 20230503
  Transmission Date: 20230721
  Serious: Yes (Life-Threatening, Hospitalization, Other)
  Sender: FDA-Public Use
  Company Number: None

PATIENT
  Age: 23 Year
  Sex: Male

DRUGS (7)
  1. PREDNISONE [Suspect]
     Active Substance: PREDNISONE
     Indication: Lupus nephritis
     Dosage: 40 MG, ONCE PER DAY
     Route: 048
     Dates: start: 202204
  2. PREDNISONE [Suspect]
     Active Substance: PREDNISONE
     Indication: Systemic lupus erythematosus
  3. HYDROXYCHLOROQUINE [Suspect]
     Active Substance: HYDROXYCHLOROQUINE
     Indication: Systemic lupus erythematosus
     Dosage: 200 MG, 2 TIMES PER DAY
     Dates: start: 202204
  4. HYDROXYCHLOROQUINE [Suspect]
     Active Substance: HYDROXYCHLOROQUINE
     Indication: Lupus nephritis
  5. TACROLIMUS [Suspect]
     Active Substance: TACROLIMUS
     Indication: Lupus nephritis
     Dosage: 1 MG, 2 TIMES PER DAY
     Route: 048
     Dates: start: 202204
  6. TACROLIMUS [Suspect]
     Active Substance: TACROLIMUS
     Indication: Systemic lupus erythematosus
  7. LEVOTHYROXINE [Concomitant]
     Active Substance: LEVOTHYROXINE
     Indication: Hypothyroidism
     Dosage: UNK  UNK
     Dates: start: 202204

REACTIONS (7)
  - Cytomegalovirus test positive [Recovering/Resolving]
  - Disseminated varicella zoster virus infection [Recovering/Resolving]
  - Herpes zoster meningoencephalitis [Recovering/Resolving]
  - Lymphopenia [Unknown]
  - Pneumocystis test positive [Unknown]
  - Aspergillus test positive [Unknown]
  - Herpes zoster meningomyelitis [Recovering/Resolving]

NARRATIVE: CASE EVENT DATE: 20220101
